FAERS Safety Report 18231498 (Version 1)
Quarter: 2020Q3

REPORT INFORMATION
  Report Type: Spontaneous
  Country: US (occurrence: US)
  Receive Date: 20200904
  Receipt Date: 20200904
  Transmission Date: 20201103
  Serious: Yes (Other)
  Sender: FDA-Public Use
  Company Number: US-ASTRAZENECA-2020SF11396

PATIENT
  Sex: Male

DRUGS (1)
  1. FASENRA [Suspect]
     Active Substance: BENRALIZUMAB
     Indication: ASTHMA
     Route: 058
     Dates: start: 20200827

REACTIONS (9)
  - Vomiting [Unknown]
  - Pyrexia [Unknown]
  - Tachycardia [Unknown]
  - Dyspnoea [Unknown]
  - Pain [Unknown]
  - Chills [Unknown]
  - SARS-CoV-2 test negative [Unknown]
  - Body temperature increased [Unknown]
  - Headache [Unknown]

NARRATIVE: CASE EVENT DATE: 20200827
